FAERS Safety Report 26112580 (Version 1)
Quarter: 2025Q4

REPORT INFORMATION
  Report Type: Spontaneous
  Country: EU (occurrence: EU)
  Receive Date: 20251202
  Receipt Date: 20251202
  Transmission Date: 20260117
  Serious: Yes (Life-Threatening)
  Sender: ALEXION PHARMACEUTICALS
  Company Number: EU-ASTRAZENECA-202511GLO028467FR

PATIENT
  Age: 72 Year
  Sex: Female
  Weight: 78 kg

DRUGS (5)
  1. OMEPRAZOLE [Suspect]
     Active Substance: OMEPRAZOLE
     Indication: Gastrooesophageal reflux prophylaxis
     Dosage: 40 MILLIGRAM, QD
     Dates: start: 20251014, end: 20251028
  2. HEPARIN SODIUM [Suspect]
     Active Substance: HEPARIN SODIUM
     Route: 065
  3. OZEMPIC [Concomitant]
     Active Substance: SEMAGLUTIDE
     Route: 065
  4. METFORMIN [Concomitant]
     Active Substance: METFORMIN HYDROCHLORIDE
     Route: 065
  5. Diamicron [Concomitant]
     Route: 065

REACTIONS (11)
  - Drug interaction [Recovered/Resolved]
  - International normalised ratio increased [Recovered/Resolved]
  - Anaemia [Recovered/Resolved]
  - Drug interaction [Recovered/Resolved]
  - Asthenia [Unknown]
  - Hypophagia [Unknown]
  - Pleural effusion [Unknown]
  - Hypotension [Unknown]
  - Tachycardia [Unknown]
  - Hyperhidrosis [Unknown]
  - Haematoma [Unknown]
